FAERS Safety Report 10085220 (Version 1)
Quarter: 2014Q2

REPORT INFORMATION
  Report Type: Spontaneous
  Country: DE (occurrence: DE)
  Receive Date: 20140417
  Receipt Date: 20140417
  Transmission Date: 20141212
  Serious: Yes (Life-Threatening, Other)
  Sender: FDA-Public Use
  Company Number: PHHY2014DE043103

PATIENT
  Age: 62 Year
  Sex: Female

DRUGS (5)
  1. AMISULPRIDE [Suspect]
     Indication: BIPOLAR DISORDER
     Dosage: 1600 MG, UNK
  2. OLANZAPINE [Suspect]
     Indication: BIPOLAR DISORDER
     Dosage: 40 MG, UNK
  3. BIPERIDEN [Suspect]
     Indication: BIPOLAR DISORDER
     Dosage: 4 MG, UNK
  4. BENPERIDOL [Suspect]
     Indication: BIPOLAR DISORDER
     Dosage: 68 MG, UNK
  5. LITHIUM CARBONATE [Suspect]
     Indication: BIPOLAR DISORDER
     Dosage: 675 MG, UNK

REACTIONS (6)
  - Ventricular arrhythmia [Recovered/Resolved]
  - Torsade de pointes [Recovered/Resolved]
  - Tachycardia [Recovered/Resolved]
  - Ventricular fibrillation [Recovered/Resolved]
  - Ventricular tachycardia [Recovered/Resolved]
  - Electrocardiogram QT prolonged [Recovered/Resolved]
